FAERS Safety Report 9788384 (Version 9)
Quarter: 2016Q3

REPORT INFORMATION
  Report Type: Spontaneous
  Country: US (occurrence: US)
  Receive Date: 20131230
  Receipt Date: 20160909
  Transmission Date: 20161109
  Serious: Yes (Hospitalization, Other)
  Sender: FDA-Public Use
  Company Number: US-MERCK-1312USA009611

PATIENT
  Sex: Female
  Weight: 48.73 kg

DRUGS (5)
  1. FOSAMAX [Suspect]
     Active Substance: ALENDRONATE SODIUM
     Indication: OSTEOPOROSIS PROPHYLAXIS
     Dosage: 70 MG, QW
     Route: 048
     Dates: start: 20050711, end: 20091215
  2. FOSAMAX [Suspect]
     Active Substance: ALENDRONATE SODIUM
     Indication: OSTEOPOROSIS
     Dosage: 70 MG, QW
     Route: 048
     Dates: start: 20100111, end: 20100315
  3. ALENDRONATE SODIUM. [Suspect]
     Active Substance: ALENDRONATE SODIUM
     Indication: OSTEOPOROSIS
  4. ALENDRONATE SODIUM. [Suspect]
     Active Substance: ALENDRONATE SODIUM
     Indication: OSTEOPOROSIS PROPHYLAXIS
     Dosage: 70 MG, UNK
     Route: 048
     Dates: start: 20080225, end: 20100215
  5. FOSAMAX [Suspect]
     Active Substance: ALENDRONATE SODIUM
     Dosage: UNK
     Route: 048
     Dates: start: 1998, end: 2010

REACTIONS (31)
  - Arthropathy [Recovering/Resolving]
  - Depressed mood [Unknown]
  - Low turnover osteopathy [Unknown]
  - Gait disturbance [Unknown]
  - Osteoarthritis [Not Recovered/Not Resolved]
  - Fall [Unknown]
  - Surgery [Unknown]
  - Oesophagitis ulcerative [Unknown]
  - Foot deformity [Recovering/Resolving]
  - Osteoporosis [Unknown]
  - Pelvic pain [Unknown]
  - Osteopenia [Unknown]
  - Cataract [Unknown]
  - Rotator cuff repair [Unknown]
  - Foot fracture [Unknown]
  - Arthroscopy [Unknown]
  - Gastrooesophageal reflux disease [Unknown]
  - Femur fracture [Recovered/Resolved with Sequelae]
  - Adverse event [Unknown]
  - Hyperlipidaemia [Unknown]
  - Hypothyroidism [Unknown]
  - Bunion operation [Unknown]
  - Osteoarthritis [Unknown]
  - Limb deformity [Unknown]
  - Synovial cyst [Unknown]
  - Femur fracture [Recovered/Resolved]
  - Gastroenteritis [Unknown]
  - Fracture nonunion [Unknown]
  - Arthralgia [Unknown]
  - Seasonal allergy [Unknown]
  - Renal cyst [Unknown]

NARRATIVE: CASE EVENT DATE: 20070830
